FAERS Safety Report 7166737-9 (Version None)
Quarter: 2010Q4

REPORT INFORMATION
  Report Type: 
  Country: None (occurrence: None)
  Receive Date: 20101216
  Receipt Date: 20101207
  Transmission Date: 20110411
  Serious: Yes (Death, Other)
  Sender: FDA-Public Use
  Company Number: US-JNJFOC-20101002599

PATIENT
  Age: 59 Year
  Sex: Male

DRUGS (9)
  1. REMICADE [Suspect]
     Indication: COLITIS ULCERATIVE
     Dosage: INITIAL DOSE
     Route: 042
  2. AZATHIOPRINE [Concomitant]
     Indication: COLITIS ULCERATIVE
  3. STEROIDS NOS [Concomitant]
     Indication: COLITIS ULCERATIVE
  4. PENTASA [Concomitant]
     Indication: COLITIS ULCERATIVE
  5. PREDNISONE [Concomitant]
     Indication: CROHN'S DISEASE
     Route: 065
  6. PROTONIX [Concomitant]
     Indication: DYSPEPSIA
     Route: 065
  7. SOTALOL [Concomitant]
     Indication: ATRIAL FIBRILLATION
     Route: 065
  8. ASPIRIN [Concomitant]
     Route: 065
  9. FOLIC ACID [Concomitant]
     Route: 065

REACTIONS (6)
  - ATRIAL FIBRILLATION [None]
  - INFUSION RELATED REACTION [None]
  - INTESTINAL ADENOCARCINOMA [None]
  - INTESTINAL PERFORATION [None]
  - PANCYTOPENIA [None]
  - SEPSIS [None]
